FAERS Safety Report 8607524-1 (Version None)
Quarter: 2012Q3

REPORT INFORMATION
  Report Type: 
  Country: None (occurrence: None)
  Receive Date: 20120821
  Receipt Date: 20120816
  Transmission Date: 20120928
  Serious: No
  Sender: FDA-Public Use
  Company Number: US-PFIZER INC-2012201499

PATIENT
  Age: 69 Year
  Sex: Female
  Weight: 60.771 kg

DRUGS (3)
  1. ADVIL [Suspect]
     Indication: HEADACHE
     Dosage: UNK, AS NEEDED
     Route: 048
     Dates: start: 19910101
  2. ADVIL [Suspect]
     Indication: MIGRAINE
  3. LEVOTHYROXINE [Concomitant]
     Indication: BASEDOW'S DISEASE
     Dosage: UNK

REACTIONS (2)
  - PAIN IN EXTREMITY [None]
  - INSOMNIA [None]
